FAERS Safety Report 25587508 (Version 2)
Quarter: 2025Q3

REPORT INFORMATION
  Report Type: Report from Study
  Country: PE (occurrence: PE)
  Receive Date: 20250721
  Receipt Date: 20250729
  Transmission Date: 20251021
  Serious: Yes (Other)
  Sender: ELI LILLY AND COMPANY
  Company Number: PE-ELI_LILLY_AND_COMPANY-PE202507016749

PATIENT
  Age: 67 Year
  Sex: Female

DRUGS (1)
  1. OLUMIANT [Suspect]
     Active Substance: BARICITINIB
     Indication: Rheumatoid arthritis
     Dosage: 4 MG, DAILY
     Route: 048
     Dates: start: 20240404, end: 20250604

REACTIONS (9)
  - Injury corneal [Recovered/Resolved]
  - Intervertebral disc space narrowing [Unknown]
  - Rheumatoid arthritis [Unknown]
  - Feeling abnormal [Unknown]
  - Gait disturbance [Unknown]
  - Dry eye [Unknown]
  - Eye pain [Unknown]
  - General physical health deterioration [Unknown]
  - Drug ineffective [Unknown]

NARRATIVE: CASE EVENT DATE: 20250601
